FAERS Safety Report 8275547-0 (Version None)
Quarter: 2012Q2

REPORT INFORMATION
  Report Type: 
  Country: None (occurrence: None)
  Receive Date: 20120412
  Receipt Date: 20120405
  Transmission Date: 20120825
  Serious: Yes (Other)
  Sender: FDA-Public Use
  Company Number: US-AMGEN-USASP2012012561

PATIENT

DRUGS (3)
  1. NEULASTA [Suspect]
  2. NEULASTA [Suspect]
     Indication: NEUTROPENIA
     Dosage: 6 MG, UNK
  3. ANTINEOPLASTIC AGENTS [Concomitant]

REACTIONS (3)
  - CHEST PAIN [None]
  - LOSS OF CONSCIOUSNESS [None]
  - INCORRECT ROUTE OF DRUG ADMINISTRATION [None]
